FAERS Safety Report 7218198-9 (Version None)
Quarter: 2011Q1

REPORT INFORMATION
  Report Type: 
  Country: None (occurrence: None)
  Receive Date: 20110110
  Receipt Date: 20110103
  Transmission Date: 20110831
  Serious: Yes (Other)
  Sender: FDA-Public Use
  Company Number: US-US-EMD SERONO, INC.-232870J09USA

PATIENT
  Sex: Female
  Weight: 93 kg

DRUGS (5)
  1. REBIF [Suspect]
     Route: 058
     Dates: start: 20080314
  2. MAXZIDE [Concomitant]
     Indication: HYPERTENSION
  3. REBIF [Suspect]
     Indication: MULTIPLE SCLEROSIS
     Route: 065
     Dates: start: 20050720
  4. TOPROL-XL [Concomitant]
     Indication: HYPERTENSION
  5. ACCUPRIL [Concomitant]
     Indication: HYPERTENSION
     Route: 048

REACTIONS (1)
  - MORTON'S NEUROMA [None]
